FAERS Safety Report 9893685 (Version 1)
Quarter: 2014Q1

REPORT INFORMATION
  Report Type: Spontaneous
  Country: NL (occurrence: NL)
  Receive Date: 20140213
  Receipt Date: 20140213
  Transmission Date: 20141002
  Serious: Yes (Life-Threatening)
  Sender: FDA-Public Use
  Company Number: NL-PFIZER INC-2014041027

PATIENT
  Age: 58 Year
  Sex: Female
  Weight: 81 kg

DRUGS (2)
  1. ZOLOFT [Suspect]
     Indication: PANIC DISORDER
     Dosage: 1 DF, 3X/DAY
     Dates: start: 20020201, end: 20020206
  2. LORAZEPAM [Concomitant]
     Dosage: 1 MG, 3X/DAY
     Dates: start: 19960504, end: 20140203

REACTIONS (1)
  - Blood pressure increased [Recovered/Resolved]
